FAERS Safety Report 5018233-2 (Version None)
Quarter: 2006Q2

REPORT INFORMATION
  Report Type: 
  Country: None (occurrence: None)
  Receive Date: 20060530
  Receipt Date: 20060517
  Transmission Date: 20061013
  Serious: Yes (Other)
  Sender: FDA-Public Use
  Company Number: 2006061050

PATIENT
  Age: 78 Year
  Sex: Female

DRUGS (4)
  1. CLINDAMYCIN HCL [Suspect]
     Indication: LOCALISED INFECTION
     Dosage: 450  MG (450 MG), INTRAVENOUS
     Route: 042
     Dates: start: 20060425, end: 20060425
  2. ERYTHROMYCIN [Concomitant]
  3. METRONIDAZOLE [Concomitant]
  4. OMEPRAZOLE [Concomitant]

REACTIONS (1)
  - HALLUCINATION, VISUAL [None]
